FAERS Safety Report 17840729 (Version 1)
Quarter: 2020Q2

REPORT INFORMATION
  Report Type: Spontaneous
  Country: CA (occurrence: CA)
  Receive Date: 20200529
  Receipt Date: 20200529
  Transmission Date: 20200714
  Serious: Yes (Hospitalization, Other)
  Sender: FDA-Public Use
  Company Number: CA-TEVA-2020-CA-1241592

PATIENT
  Age: 1 Year
  Weight: 12 kg

DRUGS (7)
  1. DEXAMETHASONE ACETATE [Suspect]
     Active Substance: DEXAMETHASONE ACETATE
     Indication: INDUCTION OF ANAESTHESIA
     Route: 042
  2. SEVOFLURANE. [Suspect]
     Active Substance: SEVOFLURANE
     Indication: INDUCTION OF ANAESTHESIA
  3. DEXMEDETOMIDINE HYDROCHLORIDE. [Suspect]
     Active Substance: DEXMEDETOMIDINE HYDROCHLORIDE
     Indication: INDUCTION OF ANAESTHESIA
     Route: 042
  4. KETOROLAC TROMETHAMINE. [Suspect]
     Active Substance: KETOROLAC TROMETHAMINE
     Indication: INDUCTION OF ANAESTHESIA
     Route: 042
  5. SALBUTAMOL [Concomitant]
     Active Substance: ALBUTEROL
  6. CICLESONIDE [Concomitant]
     Active Substance: CICLESONIDE
  7. ONDANSETRON HYDROCHLORIDE. [Suspect]
     Active Substance: ONDANSETRON HYDROCHLORIDE
     Indication: INDUCTION OF ANAESTHESIA
     Route: 042

REACTIONS (4)
  - Respiratory depression [Unknown]
  - Off label use [Unknown]
  - Oxygen saturation decreased [Unknown]
  - Product use issue [Unknown]
